FAERS Safety Report 12483656 (Version 1)
Quarter: 2016Q2

REPORT INFORMATION
  Report Type: Spontaneous
  Country: US (occurrence: None)
  Receive Date: 20160620
  Receipt Date: 20160620
  Transmission Date: 20160815
  Serious: Yes (Hospitalization)
  Sender: FDA-Public Use
  Company Number: None

PATIENT
  Age: 62 Year
  Sex: Female

DRUGS (1)
  1. ENBREL [Suspect]
     Active Substance: ETANERCEPT
     Indication: RHEUMATOID ARTHRITIS
     Dosage: CANCEL ENBREL PER HUSBAND
     Route: 058
     Dates: start: 20150109

REACTIONS (3)
  - Addison^s disease [None]
  - Peripheral swelling [None]
  - Renal disorder [None]

NARRATIVE: CASE EVENT DATE: 20160401
